FAERS Safety Report 5927604-9 (Version None)
Quarter: 2008Q4

REPORT INFORMATION
  Report Type: 
  Country: None (occurrence: None)
  Receive Date: 20081021
  Receipt Date: 20081021
  Transmission Date: 20090506
  Serious: Yes (Disabling)
  Sender: FDA-Public Use
  Company Number: None

PATIENT
  Age: 19 Year
  Sex: Female
  Weight: 80.8 kg

DRUGS (5)
  1. REMICADE [Suspect]
     Indication: JUVENILE ARTHRITIS
     Dosage: 400MG ONCE IV DRIP
     Route: 041
     Dates: start: 20081017, end: 20081017
  2. SOLU-MEDROL [Concomitant]
  3. ZOFRAN [Concomitant]
  4. BENADRYL [Concomitant]
  5. LMX-4 -LIDOCAINE 4% [Concomitant]

REACTIONS (3)
  - LIP SWELLING [None]
  - NAUSEA [None]
  - PRURITUS [None]
